FAERS Safety Report 15333638 (Version 1)
Quarter: 2018Q3

REPORT INFORMATION
  Report Type: Report from Study
  Country: None (occurrence: US)
  Receive Date: 20180830
  Receipt Date: 20180830
  Transmission Date: 20181010
  Serious: Yes (Other)
  Sender: FDA-Public Use
  Company Number: US-ABBVIE-18K-163-2421440-00

PATIENT
  Age: 68 Year
  Sex: Female
  Weight: 49.94 kg

DRUGS (14)
  1. ALPHAGAN P [Concomitant]
     Active Substance: BRIMONIDINE TARTRATE
     Indication: PRODUCT USED FOR UNKNOWN INDICATION
  2. TIMOLOL. [Concomitant]
     Active Substance: TIMOLOL
     Indication: GLAUCOMA
  3. PRAVASTATIN. [Concomitant]
     Active Substance: PRAVASTATIN
     Indication: BLOOD CHOLESTEROL
  4. PAROXETINE. [Concomitant]
     Active Substance: PAROXETINE
     Indication: HOT FLUSH
  5. VALACYCLOVIR [Concomitant]
     Active Substance: VALACYCLOVIR HYDROCHLORIDE
     Indication: HERPES ZOSTER
  6. CELEBREX [Concomitant]
     Active Substance: CELECOXIB
     Indication: PRODUCT USED FOR UNKNOWN INDICATION
  7. FOLIC ACID. [Concomitant]
     Active Substance: FOLIC ACID
     Indication: PRODUCT USED FOR UNKNOWN INDICATION
  8. PROMETHAZINE [Concomitant]
     Active Substance: PROMETHAZINE\PROMETHAZINE HYDROCHLORIDE
     Indication: PRODUCT USED FOR UNKNOWN INDICATION
  9. HUMIRA [Suspect]
     Active Substance: ADALIMUMAB
     Indication: UVEITIS
     Route: 058
     Dates: start: 2016, end: 2016
  10. TRAMADOL. [Concomitant]
     Active Substance: TRAMADOL
     Indication: PAIN
  11. MACROBID [Concomitant]
     Active Substance: NITROFURANTOIN\NITROFURANTOIN MONOHYDRATE
     Indication: URINARY TRACT INFECTION
  12. LETROZOLE. [Concomitant]
     Active Substance: LETROZOLE
     Indication: BREAST CANCER
  13. METHOTREXATE. [Concomitant]
     Active Substance: METHOTREXATE
     Indication: PRODUCT USED FOR UNKNOWN INDICATION
  14. TIMOLOL. [Concomitant]
     Active Substance: TIMOLOL
     Indication: UVEITIS

REACTIONS (10)
  - Pain [Recovering/Resolving]
  - Diarrhoea [Recovered/Resolved]
  - Rectal cancer [Recovered/Resolved]
  - Incontinence [Recovering/Resolving]
  - Post procedural haemorrhage [Not Recovered/Not Resolved]
  - Pain [Recovered/Resolved]
  - Vomiting [Recovered/Resolved]
  - Rheumatoid arthritis [Not Recovered/Not Resolved]
  - Uveitis [Recovering/Resolving]
  - Postoperative adhesion [Recovering/Resolving]

NARRATIVE: CASE EVENT DATE: 2016
